FAERS Safety Report 4298096-3 (Version None)
Quarter: 2004Q1

REPORT INFORMATION
  Report Type: 
  Country: None (occurrence: None)
  Receive Date: 20040218
  Receipt Date: 20020418
  Transmission Date: 20041129
  Serious: Yes (Hospitalization, Other)
  Sender: FDA-Public Use
  Company Number: US-BRISTOL-MYERS SQUIBB COMPANY-11841517

PATIENT
  Age: 26 Year
  Sex: Female

DRUGS (8)
  1. STADOL [Suspect]
     Indication: MIGRAINE
     Dosage: ROUTE: INJECTION
     Dates: start: 19910101, end: 19930107
  2. STADOL [Suspect]
     Indication: MIGRAINE
     Route: 045
     Dates: start: 19930710, end: 19931005
  3. COMPAZINE [Concomitant]
  4. PHENERGAN [Concomitant]
     Dosage: ROUTE: INJECTION
  5. PERCODAN [Concomitant]
  6. DARVOCET-N 100 [Concomitant]
  7. LORAZEPAM [Concomitant]
  8. AMITRIPTYLINE [Concomitant]

REACTIONS (3)
  - DEPENDENCE [None]
  - DRUG ADDICT [None]
  - RESPIRATORY DISTRESS [None]
